FAERS Safety Report 6675343-1 (Version None)
Quarter: 2010Q2

REPORT INFORMATION
  Report Type: 
  Country: None (occurrence: None)
  Receive Date: 20100409
  Receipt Date: 20100216
  Transmission Date: 20101027
  Serious: No
  Sender: FDA-Public Use
  Company Number: A0844721A

PATIENT
  Age: 85 Year
  Sex: Male

DRUGS (2)
  1. TYKERB [Suspect]
     Indication: BREAST CANCER MALE
     Dosage: 5TAB PER DAY
     Route: 048
     Dates: start: 20100203
  2. BLOOD PRESSURE MEDICATION [Concomitant]

REACTIONS (3)
  - CONDITION AGGRAVATED [None]
  - PRURITUS [None]
  - RASH [None]
